FAERS Safety Report 8394006-8 (Version None)
Quarter: 2012Q2

REPORT INFORMATION
  Report Type: 
  Country: None (occurrence: None)
  Receive Date: 20120523
  Receipt Date: 20120510
  Transmission Date: 20120825
  Serious: Yes (Hospitalization, Other)
  Sender: FDA-Public Use
  Company Number: ADR-2012-00929

PATIENT
  Age: 30 Year
  Sex: Female

DRUGS (1)
  1. BACLOFEN [Suspect]
     Indication: SPINAL CORD DISORDER
     Dosage: 720-865 MCG/DAY

REACTIONS (14)
  - ASPARTATE AMINOTRANSFERASE INCREASED [None]
  - BLOOD CREATININE INCREASED [None]
  - BLOOD CREATINE PHOSPHOKINASE INCREASED [None]
  - DYSTONIA [None]
  - ALANINE AMINOTRANSFERASE INCREASED [None]
  - PROTEIN TOTAL DECREASED [None]
  - BLOOD POTASSIUM INCREASED [None]
  - BLOOD UREA INCREASED [None]
  - HAEMOGLOBIN DECREASED [None]
  - MENTAL DISORDER [None]
  - GAMMA-GLUTAMYLTRANSFERASE INCREASED [None]
  - WHITE BLOOD CELL COUNT DECREASED [None]
  - ROAD TRAFFIC ACCIDENT [None]
  - BLOOD ALBUMIN DECREASED [None]
